FAERS Safety Report 25669968 (Version 1)
Quarter: 2025Q3

REPORT INFORMATION
  Report Type: Spontaneous
  Country: US (occurrence: US)
  Receive Date: 20250812
  Receipt Date: 20250812
  Transmission Date: 20251021
  Serious: No
  Sender: GALPHARM INTERNATIONAL
  Company Number: US-PERRIGO-24US009601

PATIENT
  Age: 72 Year
  Sex: Female
  Weight: 79.365 kg

DRUGS (4)
  1. NICOTINE POLACRILEX [Suspect]
     Active Substance: NICOTINE
     Indication: Smoking cessation therapy
     Route: 002
     Dates: start: 20241008, end: 20241009
  2. VITAMIN C [Concomitant]
     Active Substance: ASCORBIC ACID
     Indication: Supplementation therapy
     Route: 065
     Dates: start: 2021
  3. MACULAR SUPPORT [Concomitant]
     Indication: Macular degeneration
     Route: 065
     Dates: start: 2021
  4. .ALPHA.-TOCOPHEROL [Concomitant]
     Active Substance: .ALPHA.-TOCOPHEROL
     Indication: Supplementation therapy
     Route: 065
     Dates: start: 2021

REACTIONS (6)
  - Sensation of foreign body [Recovered/Resolved]
  - Chest pain [Recovered/Resolved]
  - Nausea [Recovered/Resolved]
  - Hiccups [Recovered/Resolved]
  - Vomiting [Recovered/Resolved]
  - Wrong technique in product usage process [Unknown]

NARRATIVE: CASE EVENT DATE: 20241008
